FAERS Safety Report 16715187 (Version 1)
Quarter: 2019Q3

REPORT INFORMATION
  Report Type: Spontaneous
  Country: FR (occurrence: FR)
  Receive Date: 20190819
  Receipt Date: 20190819
  Transmission Date: 20191005
  Serious: Yes (Life-Threatening)
  Sender: FDA-Public Use
  Company Number: FR-ACCORD-151781

PATIENT
  Age: 50 Year
  Sex: Male
  Weight: 94 kg

DRUGS (6)
  1. DEROXAT [Concomitant]
     Active Substance: PAROXETINE HYDROCHLORIDE
     Indication: DEPRESSION
     Dosage: DIVISIBLE COATED TABLET
     Route: 048
     Dates: start: 201811, end: 20190701
  2. TROPATEPINE [Concomitant]
     Active Substance: TROPATEPINE
     Indication: DRUG TOXICITY PROPHYLAXIS
     Route: 048
     Dates: end: 20190701
  3. CLOZAPINE. [Suspect]
     Active Substance: CLOZAPINE
     Indication: SCHIZOPHRENIA
     Route: 048
     Dates: start: 2014, end: 20190701
  4. LOXAPAC [Suspect]
     Active Substance: LOXAPINE
     Indication: SCHIZOPHRENIA
     Dosage: 25 MG
     Route: 048
     Dates: start: 2015, end: 20190701
  5. RISPERDAL CONSTA [Suspect]
     Active Substance: RISPERIDONE
     Indication: SCHIZOPHRENIA
     Route: 030
     Dates: start: 2014, end: 20190701
  6. TERCIAN [Suspect]
     Active Substance: CYAMEMAZINE
     Indication: SCHIZOPHRENIA
     Dosage: 25 MG, DIVISIBLE COATED TABLET
     Route: 048
     Dates: start: 2015, end: 20190701

REACTIONS (4)
  - Rhabdomyolysis [Recovering/Resolving]
  - Extrapyramidal disorder [Recovering/Resolving]
  - Hyperthermia malignant [Recovered/Resolved]
  - Myoclonus [Recovered/Resolved]

NARRATIVE: CASE EVENT DATE: 20190701
